FAERS Safety Report 12584300 (Version 8)
Quarter: 2018Q1

REPORT INFORMATION
  Report Type: Report from Study
  Country: GB (occurrence: GB)
  Receive Date: 20160722
  Receipt Date: 20180112
  Transmission Date: 20180508
  Serious: Yes (Hospitalization)
  Sender: FDA-Public Use
  Company Number: GB-PFIZER INC-2016349515

PATIENT
  Age: 56 Year
  Sex: Male
  Weight: 76.5 kg

DRUGS (2)
  1. AVELUMAB [Suspect]
     Active Substance: AVELUMAB
     Indication: RENAL CELL CARCINOMA
     Dosage: CYCLIC (ONCE EVERY 2 WEEKS)
     Route: 042
     Dates: start: 20160321, end: 20160630
  2. AXITINIB [Suspect]
     Active Substance: AXITINIB
     Indication: RENAL CELL CARCINOMA
     Dosage: 2X/DAY, CONTINUOUS
     Route: 048
     Dates: start: 20160321, end: 20160714

REACTIONS (1)
  - Palpitations [Recovered/Resolved]

NARRATIVE: CASE EVENT DATE: 20160713
